FAERS Safety Report 23843923 (Version 1)
Quarter: 2024Q2

REPORT INFORMATION
  Report Type: Other
  Country: US (occurrence: DE)
  Receive Date: 20240510
  Receipt Date: 20240510
  Transmission Date: 20240716
  Serious: Yes (Hospitalization)
  Sender: FDA-Public Use
  Company Number: DE-Saptalis Pharmaceuticals LLC-2156866

PATIENT
  Age: 55 Year
  Sex: Female

DRUGS (1)
  1. LIKMEZ [Suspect]
     Active Substance: METRONIDAZOLE
     Indication: Clostridium difficile infection
     Route: 065

REACTIONS (1)
  - Posterior reversible encephalopathy syndrome [Recovered/Resolved]
